FAERS Safety Report 15581868 (Version 1)
Quarter: 2018Q4

REPORT INFORMATION
  Report Type: Spontaneous
  Country: FR (occurrence: FR)
  Receive Date: 20181102
  Receipt Date: 20181102
  Transmission Date: 20190205
  Serious: Yes (Hospitalization)
  Sender: FDA-Public Use
  Company Number: FR-TEVA-2018-FR-970377

PATIENT
  Age: 28 Year
  Sex: Female

DRUGS (8)
  1. KEPPRA [Concomitant]
     Active Substance: LEVETIRACETAM
  2. ZEBINIX 800 MG, COMPRIM? [Concomitant]
  3. PARACETAMOL [Suspect]
     Active Substance: ACETAMINOPHEN
     Indication: HEADACHE
     Route: 048
  4. TRAMADOL (CHLORHYDRATE DE) [Suspect]
     Active Substance: TRAMADOL HYDROCHLORIDE
     Indication: HEADACHE
     Route: 048
     Dates: start: 2016, end: 2016
  5. PROFENID [Suspect]
     Active Substance: KETOPROFEN
     Indication: HEADACHE
     Route: 048
     Dates: start: 2016, end: 2016
  6. ACUPAN [Suspect]
     Active Substance: NEFOPAM HYDROCHLORIDE
     Indication: HEADACHE
     Route: 048
     Dates: start: 2016, end: 2016
  7. URBANYL 5 MG, G?LULE [Concomitant]
  8. IBUPROFENE [Suspect]
     Active Substance: IBUPROFEN
     Indication: HEADACHE
     Route: 048

REACTIONS (2)
  - Drug abuse [Recovered/Resolved]
  - Headache [Recovered/Resolved]

NARRATIVE: CASE EVENT DATE: 201608
